FAERS Safety Report 21978928 (Version 1)
Quarter: 2023Q1

REPORT INFORMATION
  Report Type: Spontaneous
  Country: US (occurrence: None)
  Receive Date: 20230208
  Receipt Date: 20230208
  Transmission Date: 20230417
  Serious: Yes (Hospitalization)
  Sender: FDA-Public Use
  Company Number: None

PATIENT
  Sex: Male

DRUGS (13)
  1. GENGRAF [Suspect]
     Active Substance: CYCLOSPORINE
     Indication: Renal transplant
     Route: 048
     Dates: start: 20180130
  2. ASPIRIN LOW TAB [Concomitant]
  3. ATENOLOL [Concomitant]
     Active Substance: ATENOLOL
  4. ATORVASTATIN [Concomitant]
     Active Substance: ATORVASTATIN
  5. CALCIUM DISO INJ [Concomitant]
  6. CARACCRE [Concomitant]
  7. CENTRUM TAB SILVER [Concomitant]
  8. ELIQUIS [Concomitant]
     Active Substance: APIXABAN
  9. EVEROLIMUS [Concomitant]
     Active Substance: EVEROLIMUS
  10. LOSARTAN POT TAB [Concomitant]
  11. PREDNISONE [Concomitant]
     Active Substance: PREDNISONE
  12. PROGRAF [Concomitant]
     Active Substance: TACROLIMUS
  13. TAMSULOSIN [Concomitant]
     Active Substance: TAMSULOSIN

REACTIONS (2)
  - Fall [None]
  - Hip fracture [None]
